FAERS Safety Report 4494573-0 (Version None)
Quarter: 2004Q4

REPORT INFORMATION
  Report Type: 
  Country: None (occurrence: None)
  Receive Date: 20041105
  Receipt Date: 20041013
  Transmission Date: 20050328
  Serious: Yes (Hospitalization)
  Sender: FDA-Public Use
  Company Number: NZ-MERCK-0410NZL00074

PATIENT
  Age: 57 Year
  Sex: Female
  Weight: 65 kg

DRUGS (5)
  1. VIOXX [Suspect]
     Indication: RHEUMATOID ARTHRITIS
     Route: 048
     Dates: start: 20020101, end: 20040901
  2. LEVOTHYROXINE SODIUM [Concomitant]
     Route: 065
     Dates: start: 19930101
  3. LOSEC (OMEPRAZOLE MAGNESIUM) [Concomitant]
     Indication: REFLUX OESOPHAGITIS
     Route: 065
     Dates: start: 19980101
  4. CALCIUM (UNSPECIFIED) [Concomitant]
     Route: 065
  5. PREMARIN [Concomitant]
     Indication: HORMONE REPLACEMENT THERAPY
     Route: 065

REACTIONS (1)
  - MYOCARDIAL INFARCTION [None]
